FAERS Safety Report 12364542 (Version 1)
Quarter: 2016Q2

REPORT INFORMATION
  Report Type: Report from Study
  Country: CO (occurrence: CO)
  Receive Date: 20160513
  Receipt Date: 20160513
  Transmission Date: 20160815
  Serious: Yes (Death, Other)
  Sender: FDA-Public Use
  Company Number: CO-ASTELLAS-2016US018680

PATIENT
  Sex: Female
  Weight: 51 kg

DRUGS (1)
  1. TACROLIMUS. [Suspect]
     Active Substance: TACROLIMUS
     Indication: RENAL TRANSPLANT
     Dosage: 4 MG, ONCE DAILY (IN 1 DAY)
     Route: 048
     Dates: start: 20081016

REACTIONS (2)
  - Gastric ulcer [Fatal]
  - Cytomegalovirus infection [Fatal]
